FAERS Safety Report 5878606-2 (Version None)
Quarter: 2008Q3

REPORT INFORMATION
  Report Type: 
  Country: None (occurrence: None)
  Receive Date: 20080909
  Receipt Date: 20080903
  Transmission Date: 20090109
  Serious: Yes (Hospitalization)
  Sender: FDA-Public Use
  Company Number: 2008SP006247

PATIENT
  Age: 61 Year
  Sex: Male
  Weight: 85 kg

DRUGS (11)
  1. SCH 503034 (BOCEPREVIR) [Suspect]
     Indication: HEPATITIS C
     Dosage: 800 MG; TID; PO
     Route: 048
     Dates: start: 20070510, end: 20080331
  2. PEG-INTRON [Suspect]
     Indication: HEPATITIS C
     Dosage: 150 MCG; QW; SC
     Route: 058
     Dates: start: 20070510, end: 20080331
  3. RIBAVIRIN [Suspect]
     Indication: HEPATITIS C
     Dosage: 1200 MG; QD; PO; 400 MG; BID; PO
     Route: 048
     Dates: end: 20080331
  4. RIBAVIRIN [Suspect]
     Indication: HEPATITIS C
     Dosage: 1200 MG; QD; PO; 400 MG; BID; PO
     Route: 048
     Dates: start: 20070510
  5. ELAVIL [Concomitant]
  6. ACETAMINOPHEN [Concomitant]
  7. ELOCON (MOMETASONE) [Concomitant]
  8. FUROATE [Concomitant]
     Route: 061
  9. DOVONEX [Concomitant]
  10. FOLIC ACID [Concomitant]
  11. VITAMIN B-12 [Concomitant]

REACTIONS (7)
  - DISEASE RECURRENCE [None]
  - HAEMOGLOBIN DECREASED [None]
  - LEFT VENTRICULAR HYPERTROPHY [None]
  - NAUSEA [None]
  - PAIN [None]
  - PALPITATIONS [None]
  - PERICARDITIS [None]
